FAERS Safety Report 22212855 (Version 2)
Quarter: 2023Q2

REPORT INFORMATION
  Report Type: Report from Study
  Country: CN (occurrence: None)
  Receive Date: 20230414
  Receipt Date: 20230428
  Transmission Date: 20230722
  Serious: Yes (Hospitalization)
  Sender: FDA-Public Use
  Company Number: CN-ROCHE-3327802

PATIENT
  Age: 58 Year
  Sex: Male
  Weight: 89 kg

DRUGS (18)
  1. CISPLATIN [Suspect]
     Active Substance: CISPLATIN
     Indication: Non-small cell lung cancer stage IV
     Dosage: START AND STOP DATE OF MOST RECENT DOSE 150 MG OF STUDY DRUG PRIOR TO AE/SAE BETWEEN 03/MAR/2023 4:2
     Route: 042
     Dates: start: 20221202
  2. GEMCITABINE [Suspect]
     Active Substance: GEMCITABINE
     Indication: Non-small cell lung cancer stage IV
     Dosage: START AND END DATE OF MOST RECENT DOSE 2500 MG OF STUDY DRUG PRIOR TO AE/SAE ON 03/MAR/2023 BETWEEN1
     Route: 042
     Dates: start: 20221202
  3. ACARBOSE [Concomitant]
     Active Substance: ACARBOSE
     Indication: Type 2 diabetes mellitus
     Route: 048
     Dates: start: 20220915
  4. BICYCLOL [Concomitant]
     Active Substance: BICYCLOL
     Indication: Hepatic function abnormal
     Route: 048
     Dates: start: 20221106
  5. DILTIAZEM HYDROCHLORIDE [Concomitant]
     Active Substance: DILTIAZEM HYDROCHLORIDE
     Indication: Atrial fibrillation
     Route: 048
     Dates: start: 20221123
  6. BISOPROLOL FUMARATE [Concomitant]
     Active Substance: BISOPROLOL FUMARATE
     Indication: Atrial fibrillation
     Route: 048
     Dates: start: 20221123
  7. AMLODIPINE BESYLATE [Concomitant]
     Active Substance: AMLODIPINE BESYLATE
     Indication: Hypertension
     Route: 048
     Dates: start: 2016
  8. SODIUM CHLORIDE [Concomitant]
     Active Substance: SODIUM CHLORIDE
     Route: 050
     Dates: start: 20230209, end: 20230211
  9. DIPHENHYDRAMINE HYDROCHLORIDE [Concomitant]
     Active Substance: DIPHENHYDRAMINE HYDROCHLORIDE
     Route: 042
     Dates: start: 20230210, end: 20230211
  10. DIPHENHYDRAMINE HYDROCHLORIDE [Concomitant]
     Active Substance: DIPHENHYDRAMINE HYDROCHLORIDE
     Route: 042
     Dates: start: 20230217, end: 20230217
  11. METOCLOPRAMIDE DIHYDROCHLORIDE [Concomitant]
     Dosage: SUBSEQUENT DOSE ON 17/FEB/2023, 03/MAR/2023
     Route: 042
     Dates: start: 20230210, end: 20230211
  12. TROPISETRON HYDROCHLORIDE AND GLUCOSE [Concomitant]
     Route: 042
     Dates: start: 20230210, end: 20230210
  13. DEXAMETHASONE SODIUM PHOSPHATE [Concomitant]
     Active Substance: DEXAMETHASONE SODIUM PHOSPHATE
     Dosage: SUBSEQUENT DOSE ON 03/MAR/2023
     Route: 042
     Dates: start: 20230210, end: 20230211
  14. FOSAPREPITANT DIMEGLUMINE [Concomitant]
     Active Substance: FOSAPREPITANT DIMEGLUMINE
     Route: 042
     Dates: start: 20230210, end: 20230210
  15. SODIUM BICARBONATE [Concomitant]
     Active Substance: SODIUM BICARBONATE
     Dosage: SUBSEQUENT DOSE ON 03/MAR/2023
     Route: 042
     Dates: start: 20230210, end: 20230210
  16. MANNITOL [Concomitant]
     Active Substance: MANNITOL
     Dosage: SUBSEQUENT DOSE ON 03/MAR/2023
     Route: 042
     Dates: start: 20230210, end: 20230210
  17. TORSEMIDE [Concomitant]
     Active Substance: TORSEMIDE
     Indication: Atrial fibrillation
     Route: 048
     Dates: start: 20230201, end: 20230212
  18. GRANISETRON HYDROCHLORIDE [Concomitant]
     Active Substance: GRANISETRON HYDROCHLORIDE
     Route: 042
     Dates: start: 20230303, end: 20230304

REACTIONS (1)
  - Retinal artery occlusion [Not Recovered/Not Resolved]

NARRATIVE: CASE EVENT DATE: 20230308
